FAERS Safety Report 9965845 (Version 1)
Quarter: 2014Q1

REPORT INFORMATION
  Report Type: Report from Study
  Country: US (occurrence: US)
  Receive Date: 20140305
  Receipt Date: 20140305
  Transmission Date: 20141002
  Serious: No
  Sender: FDA-Public Use
  Company Number: US-ABBVIE-13P-163-1123824-00

PATIENT
  Age: 57 Year
  Sex: Female
  Weight: 95.34 kg

DRUGS (8)
  1. METHOTREXATE [Concomitant]
     Indication: PSORIATIC ARTHROPATHY
  2. MELOXICAM [Concomitant]
     Indication: PSORIATIC ARTHROPATHY
  3. LOSARTIN [Concomitant]
     Indication: BLOOD PRESSURE MANAGEMENT
  4. HYDROCHLOROTHIAZIDE [Concomitant]
     Indication: BLOOD PRESSURE MANAGEMENT
  5. SIMVASTATIN [Concomitant]
     Indication: CHOLESTEROSIS
  6. ADDERALL [Concomitant]
     Indication: SLEEP DISORDER
  7. LEXAPRO [Concomitant]
     Indication: DEPRESSION
  8. HUMIRA [Suspect]
     Indication: PSORIATIC ARTHROPATHY
     Dates: start: 201101, end: 201201

REACTIONS (2)
  - Diabetes mellitus [Not Recovered/Not Resolved]
  - Drug effect decreased [Not Recovered/Not Resolved]
